APPROVED DRUG PRODUCT: BEYAZ
Active Ingredient: DROSPIRENONE; ETHINYL ESTRADIOL; LEVOMEFOLATE CALCIUM
Strength: 3MG,N/A;0.02MG,N/A;0.451MG,0.451MG
Dosage Form/Route: TABLET;ORAL
Application: N022532 | Product #001 | TE Code: AB
Applicant: BAYER HEALTHCARE PHARMACEUTICALS INC
Approved: Sep 24, 2010 | RLD: Yes | RS: Yes | Type: RX

PATENTS:
Patent 11617751 | Expires: Jul 17, 2030
Patent 11617751 | Expires: Jul 17, 2030
Patent 11617751 | Expires: Jul 17, 2030
Patent 11617751 | Expires: Jul 17, 2030
Patent 8617597 | Expires: Feb 8, 2030